FAERS Safety Report 22222614 (Version 5)
Quarter: 2025Q1

REPORT INFORMATION
  Report Type: Spontaneous
  Country: US (occurrence: US)
  Receive Date: 20230418
  Receipt Date: 20250207
  Transmission Date: 20250409
  Serious: Yes (Other)
  Sender: SANOFI AVENTIS
  Company Number: US-SA-SAC20230418000170

PATIENT
  Age: 37 Year
  Sex: Female
  Weight: 69.09 kg

DRUGS (1)
  1. DUPIXENT [Suspect]
     Active Substance: DUPILUMAB
     Indication: Dermatitis atopic
     Dosage: 300 MG, QOW
     Route: 058
     Dates: end: 20241116

REACTIONS (7)
  - Pneumonia [Recovered/Resolved]
  - Injection site pain [Unknown]
  - Product dose omission in error [Unknown]
  - Product preparation error [Unknown]
  - Incorrect route of product administration [Unknown]
  - Eczema [Unknown]
  - Rash [Unknown]

NARRATIVE: CASE EVENT DATE: 20230404
